FAERS Safety Report 24732943 (Version 2)
Quarter: 2024Q4

REPORT INFORMATION
  Report Type: Spontaneous
  Country: US (occurrence: US)
  Receive Date: 20241213
  Receipt Date: 20241226
  Transmission Date: 20250115
  Serious: Yes (Other)
  Sender: ABBVIE
  Company Number: US-ABBVIE-6037986

PATIENT
  Age: 85 Year
  Sex: Female

DRUGS (2)
  1. REFRESH TEARS [Suspect]
     Active Substance: CARBOXYMETHYLCELLULOSE SODIUM
     Indication: Product used for unknown indication
     Dosage: UNKNOWN
     Route: 047
     Dates: start: 2019
  2. REFRESH PLUS [Suspect]
     Active Substance: CARBOXYMETHYLCELLULOSE SODIUM
     Indication: Dry eye
     Dosage: PRESERVATIVE FREE?1 DROP ON EACH EYE
     Route: 047
     Dates: start: 202406

REACTIONS (4)
  - Cataract [Unknown]
  - Eye irritation [Recovering/Resolving]
  - Nasal discomfort [Unknown]
  - Fatigue [Not Recovered/Not Resolved]

NARRATIVE: CASE EVENT DATE: 20220101
